FAERS Safety Report 4605001-6 (Version None)
Quarter: 2005Q1

REPORT INFORMATION
  Report Type: 
  Country: None (occurrence: None)
  Receive Date: 20050310
  Receipt Date: 20050310
  Transmission Date: 20050727
  Serious: Yes (Other)
  Sender: FDA-Public Use
  Company Number: None

PATIENT
  Sex: Female
  Weight: 54.4316 kg

DRUGS (6)
  1. AVELOX [Suspect]
     Indication: INFECTION
     Dosage: 400 MG ONE PO QD
     Route: 048
     Dates: start: 20050214, end: 20050219
  2. PAXIL [Suspect]
     Indication: NERVOUSNESS
     Dosage: 10 MG ONE PO BID
     Route: 048
  3. PAXIL [Suspect]
     Indication: PANIC ATTACK
     Dosage: 10 MG ONE PO BID
     Route: 048
  4. DIAZEPAM [Concomitant]
  5. ALLEGRA [Concomitant]
  6. FLONASE [Concomitant]

REACTIONS (4)
  - FEELING JITTERY [None]
  - HYPERHIDROSIS [None]
  - NERVOUSNESS [None]
  - PANIC ATTACK [None]
